FAERS Safety Report 5772755-5 (Version None)
Quarter: 2008Q2

REPORT INFORMATION
  Report Type: 
  Country: None (occurrence: None)
  Receive Date: 20080601
  Receipt Date: 20080317
  Transmission Date: 20081010
  Serious: No
  Sender: FDA-Public Use
  Company Number: US200803004119

PATIENT
  Age: 75 Year
  Sex: Female

DRUGS (2)
  1. BYETTA [Suspect]
     Indication: TYPE 2 DIABETES MELLITUS
     Dosage: 5 UG, 2/D, SUBCUTANEOUS; 25 UG, SUBCUTANEOUS
     Route: 058
     Dates: start: 20080316, end: 20080316
  2. BYETTA [Suspect]
     Indication: TYPE 2 DIABETES MELLITUS
     Dosage: 5 UG, 2/D, SUBCUTANEOUS; 25 UG, SUBCUTANEOUS
     Route: 058
     Dates: start: 20080316

REACTIONS (5)
  - ACCIDENTAL OVERDOSE [None]
  - FATIGUE [None]
  - INCORRECT DOSE ADMINISTERED [None]
  - SOMNOLENCE [None]
  - VOMITING [None]
